FAERS Safety Report 6810265-4 (Version None)
Quarter: 2010Q2

REPORT INFORMATION
  Report Type: 
  Country: None (occurrence: None)
  Receive Date: 20100630
  Receipt Date: 20100622
  Transmission Date: 20101027
  Serious: Yes (Hospitalization)
  Sender: FDA-Public Use
  Company Number: DE-BRISTOL-MYERS SQUIBB COMPANY-14795058

PATIENT
  Age: 70 Year
  Sex: Female
  Weight: 66 kg

DRUGS (3)
  1. CETUXIMAB [Suspect]
     Indication: NON-SMALL CELL LUNG CANCER
     Dosage: CETUXIMAB 5 MG/ML,MOST RECENT INF ON 11SEP09 INTERRUPTED ON 18SEP09; DURATION:78 DAYS.
     Route: 042
     Dates: start: 20090702
  2. CARBOPLATIN [Suspect]
     Indication: NON-SMALL CELL LUNG CANCER
     Dosage: 1DF 4AUC(DAY 1 OF 21 DAYS CYCLE).MOST RECENT INF ON 04SEP09
     Route: 042
     Dates: start: 20090702
  3. GEMCITABINE HCL [Suspect]
     Indication: NON-SMALL CELL LUNG CANCER
     Dosage: 1,8,21DAYS CYCLE,MOST RECENT INF ON 11SEP09
     Route: 042
     Dates: start: 20090702

REACTIONS (6)
  - EPISTAXIS [None]
  - FATIGUE [None]
  - GENERAL PHYSICAL HEALTH DETERIORATION [None]
  - NAUSEA [None]
  - THROMBOCYTOPENIA [None]
  - VOMITING [None]
